FAERS Safety Report 24983768 (Version 2)
Quarter: 2025Q1

REPORT INFORMATION
  Report Type: Spontaneous
  Country: US (occurrence: US)
  Receive Date: 20250219
  Receipt Date: 20250320
  Transmission Date: 20250408
  Serious: Yes (Other)
  Sender: BRISTOL-MYERS SQUIBB COMPANY
  Company Number: US-BRISTOL-MYERS SQUIBB COMPANY-2025-024965

PATIENT
  Age: 74 Year
  Sex: Male
  Weight: 83.01 kg

DRUGS (2)
  1. REVLIMID [Suspect]
     Active Substance: LENALIDOMIDE
     Indication: Plasma cell myeloma
     Dosage: FREQ: AFTER DIALYSIS DAYS (TUE,THURS,SAT)FO R 2 WEEKS OF 3 WEEK CYCLE.
     Route: 048
  2. REVLIMID [Suspect]
     Active Substance: LENALIDOMIDE
     Route: 048

REACTIONS (4)
  - Constipation [Unknown]
  - Off label use [Unknown]
  - Helicobacter infection [Recovering/Resolving]
  - Hiccups [Recovering/Resolving]
